FAERS Safety Report 13547261 (Version 4)
Quarter: 2018Q4

REPORT INFORMATION
  Report Type: Report from Study
  Country: US (occurrence: US)
  Receive Date: 20170515
  Receipt Date: 20181023
  Transmission Date: 20190204
  Serious: Yes (Death, Life-Threatening, Hospitalization)
  Sender: FDA-Public Use
  Company Number: US-ACTELION-A-US2017-149677

PATIENT
  Age: 49 Year
  Sex: Female

DRUGS (22)
  1. LACTOBAC [Concomitant]
     Active Substance: LACTOBACILLUS ACIDOPHILUS
     Dosage: UNK
     Dates: start: 20170223
  2. TYLENOL [Concomitant]
     Active Substance: ACETAMINOPHEN
     Dosage: UNK
     Dates: start: 20170223
  3. BUSPAR [Concomitant]
     Active Substance: BUSPIRONE HYDROCHLORIDE
     Dosage: UNK
     Dates: start: 20170223
  4. ROBITUSSIN DM [Concomitant]
     Active Substance: DEXTROMETHORPHAN HYDROBROMIDE\GUAIFENESIN
     Dosage: UNK
     Dates: start: 20170223
  5. MIRALAX [Concomitant]
     Active Substance: POLYETHYLENE GLYCOL 3350
     Dosage: UNK
     Dates: start: 20170223
  6. TYVASO [Concomitant]
     Active Substance: TREPROSTINIL
     Dosage: UNK
     Dates: start: 20170223
  7. OXYGEN. [Concomitant]
     Active Substance: OXYGEN
     Indication: PULMONARY HYPERTENSION
     Dosage: UNK
     Dates: start: 20170203
  8. OPSUMIT [Suspect]
     Active Substance: MACITENTAN
     Indication: PULMONARY ARTERIAL HYPERTENSION
     Dosage: 10 MG, QD
     Route: 048
     Dates: start: 20170203, end: 20170327
  9. FISH OIL [Concomitant]
     Active Substance: FISH OIL
     Dosage: UNK
     Dates: start: 20170223
  10. CELLCEPT [Concomitant]
     Active Substance: MYCOPHENOLATE MOFETIL\MYCOPHENOLATE MOFETIL HYDROCHLORIDE
     Dosage: UNK
     Dates: start: 20170223
  11. FERROUS GLUCONATE [Concomitant]
     Active Substance: FERROUS GLUCONATE
     Dosage: UNK
     Dates: start: 20170223
  12. LASIX [Concomitant]
     Active Substance: FUROSEMIDE
     Dosage: 60 MG, BID
     Route: 042
  13. TRAMADOL. [Concomitant]
     Active Substance: TRAMADOL
     Dosage: UNK
     Dates: start: 20170223
  14. ZOFRAN [Concomitant]
     Active Substance: ONDANSETRON HYDROCHLORIDE
     Dosage: UNK
     Dates: start: 20170223
  15. DELTASONE [Concomitant]
     Active Substance: PREDNISONE
     Dosage: UNK
     Dates: start: 20170223
  16. CHLOROPHYLLIN COPPER COMPLEX [Concomitant]
     Dosage: UNK
     Dates: start: 20170223
  17. THERAGRAN [Concomitant]
     Active Substance: VITAMINS
     Dosage: UNK
     Dates: start: 20170223
  18. ADCIRCA [Concomitant]
     Active Substance: TADALAFIL
     Dosage: UNK
     Dates: start: 20170223
  19. ALBUTEROL. [Concomitant]
     Active Substance: ALBUTEROL
     Dosage: UNK
     Dates: start: 20170223
  20. ELIQUIS [Concomitant]
     Active Substance: APIXABAN
     Dosage: UNK
     Dates: start: 20170223
  21. LASIX [Concomitant]
     Active Substance: FUROSEMIDE
     Dosage: 40 MG, BID
     Route: 042
     Dates: start: 20170223
  22. ASTRAGALUS PROPINQUUS ROOT [Concomitant]
     Dosage: UNK
     Dates: start: 20170223

REACTIONS (12)
  - Weight increased [Recovered/Resolved]
  - Oxygen saturation decreased [Recovering/Resolving]
  - Respiratory failure [Fatal]
  - Right ventricular failure [Fatal]
  - Hypoxia [Recovered/Resolved]
  - Abdominal distension [Recovering/Resolving]
  - Rhinorrhoea [Not Recovered/Not Resolved]
  - Dyspnoea [Recovered/Resolved]
  - Fluid overload [Recovering/Resolving]
  - Cough [Not Recovered/Not Resolved]
  - Pulmonary arterial hypertension [Fatal]
  - Fluid retention [Unknown]

NARRATIVE: CASE EVENT DATE: 20170222
